FAERS Safety Report 21552638 (Version 1)
Quarter: 2022Q4

REPORT INFORMATION
  Report Type: Spontaneous
  Country: EG (occurrence: EG)
  Receive Date: 20221104
  Receipt Date: 20221104
  Transmission Date: 20230112
  Serious: Yes (Life-Threatening, Other)
  Sender: FDA-Public Use
  Company Number: EG-Hikma Pharmaceuticals USA Inc.-EG-H14001-22-02775

PATIENT
  Age: 62 Year
  Sex: Female
  Weight: 73 kg

DRUGS (1)
  1. PACLITAXEL [Suspect]
     Active Substance: PACLITAXEL
     Indication: Product used for unknown indication
     Route: 041
     Dates: start: 20210530

REACTIONS (9)
  - Febrile neutropenia [Recovered/Resolved]
  - Hepatic cirrhosis [Recovered/Resolved]
  - Blood bilirubin increased [Recovered/Resolved]
  - International normalised ratio increased [Recovered/Resolved]
  - Somnolence [Unknown]
  - Pyrexia [Unknown]
  - Nasal congestion [Unknown]
  - Skin infection [Unknown]
  - Skin weeping [Unknown]

NARRATIVE: CASE EVENT DATE: 20210606
